FAERS Safety Report 23466170 (Version 1)
Quarter: 2024Q1

REPORT INFORMATION
  Report Type: Spontaneous
  Country: US (occurrence: None)
  Receive Date: 20240131
  Receipt Date: 20240131
  Transmission Date: 20240410
  Serious: Yes (Other)
  Sender: FDA-Public Use
  Company Number: None

PATIENT
  Age: 66 Year
  Sex: Female

DRUGS (9)
  1. GABAPENTIN [Suspect]
     Active Substance: GABAPENTIN
     Dates: start: 20150101
  2. CALCIUM\CHOLECALCIFEROL [Concomitant]
     Active Substance: CALCIUM\CHOLECALCIFEROL
  3. ONDANSETRON [Concomitant]
     Active Substance: ONDANSETRON
  4. OMEPRAZOLE [Concomitant]
     Active Substance: OMEPRAZOLE
  5. IMITREX [Concomitant]
     Active Substance: SUMATRIPTAN SUCCINATE
  6. TRAMADOL [Concomitant]
     Active Substance: TRAMADOL\TRAMADOL HYDROCHLORIDE
  7. Pre-natal [Concomitant]
  8. ZINC [Concomitant]
     Active Substance: PYRITHIONE ZINC\ZINC\ZINC CHLORIDE
  9. Immune gummies [Concomitant]

REACTIONS (5)
  - Fall [None]
  - Agitation [None]
  - Night sweats [None]
  - Drug dependence [None]
  - Incorrect dose administered [None]

NARRATIVE: CASE EVENT DATE: 20240128
